FAERS Safety Report 17183770 (Version 1)
Quarter: 2019Q4

REPORT INFORMATION
  Report Type: Spontaneous
  Country: BR (occurrence: BR)
  Receive Date: 20191220
  Receipt Date: 20191220
  Transmission Date: 20200122
  Serious: Yes (Other)
  Sender: FDA-Public Use
  Company Number: BR-EMD SERONO-9135730

PATIENT
  Sex: Female

DRUGS (5)
  1. GLIFAGE [Suspect]
     Active Substance: METFORMIN HYDROCHLORIDE
     Route: 048
  2. GLIFAGE [Suspect]
     Active Substance: METFORMIN HYDROCHLORIDE
     Indication: TYPE 2 DIABETES MELLITUS
     Route: 048
     Dates: start: 2014
  3. INSULIN [Concomitant]
     Active Substance: INSULIN NOS
     Indication: TYPE 2 DIABETES MELLITUS
     Dosage: 25 UNITS OF INSULIN IN THE MORNING + 30 UNITS OF INSULIN BEFORE SLEEPS
  4. THIOCTACID [Suspect]
     Active Substance: .ALPHA.-LIPOIC ACID
     Indication: TYPE 2 DIABETES MELLITUS
     Dosage: ABOUT MAY OR JUN 2019
     Route: 048
     Dates: start: 2019
  5. THIOCTACID [Suspect]
     Active Substance: .ALPHA.-LIPOIC ACID
     Indication: NERVOUS SYSTEM DISORDER

REACTIONS (10)
  - Nervousness [Unknown]
  - Feeling hot [Unknown]
  - Hepatic cyst [Unknown]
  - Nervous system disorder [Unknown]
  - Blister rupture [Recovering/Resolving]
  - Peripheral swelling [Unknown]
  - Blister [Recovering/Resolving]
  - Pain in extremity [Unknown]
  - Therapeutic response decreased [Unknown]
  - Renal cyst [Unknown]

NARRATIVE: CASE EVENT DATE: 2019
